FAERS Safety Report 14343131 (Version 1)
Quarter: 2017Q4

REPORT INFORMATION
  Report Type: Spontaneous
  Country: US (occurrence: US)
  Receive Date: 20171231
  Receipt Date: 20171231
  Transmission Date: 20180321
  Serious: No
  Sender: FDA-Public Use
  Company Number: None

PATIENT
  Sex: Male
  Weight: 69.3 kg

DRUGS (5)
  1. IMMIPRIMINE [Concomitant]
  2. VITAMIN D [Concomitant]
     Active Substance: CHOLECALCIFEROL
  3. EMFLAZA [Suspect]
     Active Substance: DEFLAZACORT
     Indication: DRUG THERAPY
     Dosage: ?          QUANTITY:1 TABLET(S);?
     Route: 048
  4. PREVACID [Concomitant]
     Active Substance: LANSOPRAZOLE
  5. LOSARTIN [Concomitant]
     Active Substance: LOSARTAN

REACTIONS (4)
  - Diarrhoea [None]
  - Asthenia [None]
  - Headache [None]
  - Condition aggravated [None]
